FAERS Safety Report 21897532 (Version 1)
Quarter: 2023Q1

REPORT INFORMATION
  Report Type: Spontaneous
  Country: BR (occurrence: None)
  Receive Date: 20230123
  Receipt Date: 20230123
  Transmission Date: 20230418
  Serious: Yes (Other)
  Sender: FDA-Public Use
  Company Number: BR-Merck Healthcare KGaA-9378003

PATIENT
  Sex: Female

DRUGS (4)
  1. BISOPROLOL FUMARATE [Suspect]
     Active Substance: BISOPROLOL FUMARATE
     Indication: Arrhythmia
     Dosage: THERAPY START DATE: 4 YEARS AGO, APPROXIMATELY. 30 TABLETS
     Route: 048
  2. METFORMIN HYDROCHLORIDE [Suspect]
     Active Substance: METFORMIN HYDROCHLORIDE
     Indication: Type 1 diabetes mellitus
     Dosage: THERAPY START DATE; 32 TO 34 YEARS AGO, APPROXIMATELY
     Route: 048
  3. LUMIGAN [Concomitant]
     Active Substance: BIMATOPROST
     Indication: Product used for unknown indication
  4. PRADAXA [Concomitant]
     Active Substance: DABIGATRAN ETEXILATE MESYLATE
     Indication: Arrhythmia

REACTIONS (4)
  - Skin cancer [Not Recovered/Not Resolved]
  - Essential tremor [Not Recovered/Not Resolved]
  - Loss of personal independence in daily activities [Unknown]
  - Off label use [Unknown]
